FAERS Safety Report 5914173-2 (Version None)
Quarter: 2008Q4

REPORT INFORMATION
  Report Type: 
  Country: None (occurrence: None)
  Receive Date: 20081009
  Receipt Date: 20080929
  Transmission Date: 20090506
  Serious: Yes (Hospitalization)
  Sender: FDA-Public Use
  Company Number: US-PFIZER INC-2008015623

PATIENT
  Sex: Male
  Weight: 96.6 kg

DRUGS (8)
  1. SUTENT [Suspect]
     Indication: PROSTATE CANCER
     Route: 048
     Dates: start: 20070508, end: 20080212
  2. CALTRATE + D [Concomitant]
     Dosage: TEXT:1 TABLET-FREQ:TWICE A DAY
     Route: 048
  3. WARFARIN SODIUM [Concomitant]
     Route: 048
  4. CYANOCOBALAMIN [Concomitant]
     Route: 030
     Dates: end: 20071219
  5. HYDROCODONE BITARTRATE + ACETAMINOPHEN [Concomitant]
     Route: 048
  6. NORVASC [Concomitant]
     Route: 048
  7. TYLENOL (CAPLET) [Concomitant]
     Route: 048
  8. XALATAN [Concomitant]
     Indication: GLAUCOMA
     Route: 047

REACTIONS (3)
  - ANOREXIA [None]
  - DIVERTICULITIS [None]
  - FATIGUE [None]
